FAERS Safety Report 23874321 (Version 1)
Quarter: 2024Q2

REPORT INFORMATION
  Report Type: Spontaneous
  Country: US (occurrence: US)
  Receive Date: 20240520
  Receipt Date: 20240520
  Transmission Date: 20240716
  Serious: Yes (Other)
  Sender: FDA-Public Use
  Company Number: US-PFIZER INC-PV202400064375

PATIENT
  Age: 68 Year
  Sex: Female
  Weight: 65.941 kg

DRUGS (1)
  1. MEKTOVI [Suspect]
     Active Substance: BINIMETINIB
     Indication: Metastatic malignant melanoma
     Dosage: UNK
     Dates: start: 20231023, end: 20240103

REACTIONS (15)
  - Hallucination, auditory [Unknown]
  - Hallucination, visual [Unknown]
  - Sjogren^s syndrome [Unknown]
  - Dermatitis [Unknown]
  - Dry mouth [Not Recovered/Not Resolved]
  - Xerosis [Unknown]
  - Dry eye [Unknown]
  - Corneal abrasion [Recovered/Resolved]
  - Photophobia [Recovered/Resolved]
  - Acquired gene mutation [Unknown]
  - Red cell distribution width increased [Unknown]
  - Eosinophil count increased [Unknown]
  - Blood creatinine increased [Unknown]
  - Blood glucose increased [Unknown]
  - Glomerular filtration rate decreased [Unknown]

NARRATIVE: CASE EVENT DATE: 20240101
